FAERS Safety Report 6158274-5 (Version None)
Quarter: 2009Q2

REPORT INFORMATION
  Report Type: 
  Country: None (occurrence: None)
  Receive Date: 20090417
  Receipt Date: 20090414
  Transmission Date: 20091009
  Serious: Yes (Other)
  Sender: FDA-Public Use
  Company Number: GB-ASTRAZENECA-2009GB00885

PATIENT
  Age: 67 Year
  Sex: Female

DRUGS (4)
  1. QUETIAPINE FUMARATE [Suspect]
     Indication: MAJOR DEPRESSION
     Dosage: 50 MG
     Route: 048
     Dates: start: 20090113, end: 20090213
  2. QUETIAPINE FUMARATE [Suspect]
     Dosage: 50 MG
     Route: 048
     Dates: start: 20090213, end: 20090218
  3. DOTHIEPIN HYDROCHLORIDE [Concomitant]
     Indication: MAJOR DEPRESSION
     Dosage: 75 MG
     Route: 048
     Dates: end: 20090113
  4. MIRTAZAPINE [Concomitant]
     Indication: MAJOR DEPRESSION
     Route: 048
     Dates: start: 20090113

REACTIONS (2)
  - OEDEMA PERIPHERAL [None]
  - PAIN IN EXTREMITY [None]
